FAERS Safety Report 25882070 (Version 1)
Quarter: 2025Q4

REPORT INFORMATION
  Report Type: Spontaneous
  Country: US (occurrence: US)
  Receive Date: 20251006
  Receipt Date: 20251006
  Transmission Date: 20260118
  Serious: Yes (Other)
  Sender: JOHNSON AND JOHNSON
  Company Number: US-JNJFOC-20250941581

PATIENT
  Sex: Female

DRUGS (1)
  1. MACITENTAN\TADALAFIL [Suspect]
     Active Substance: MACITENTAN\TADALAFIL
     Indication: Product used for unknown indication
     Route: 048

REACTIONS (3)
  - Pain [Unknown]
  - Dizziness [Unknown]
  - Headache [Unknown]
